FAERS Safety Report 16138947 (Version 2)
Quarter: 2019Q4

REPORT INFORMATION
  Report Type: Report from Study
  Country: US (occurrence: US)
  Receive Date: 20190330
  Receipt Date: 20191204
  Transmission Date: 20200122
  Serious: Yes (Other)
  Sender: FDA-Public Use
  Company Number: PHEH2019US013587

PATIENT
  Sex: Female

DRUGS (1)
  1. SIMBRINZA [Suspect]
     Active Substance: BRIMONIDINE TARTRATE\BRINZOLAMIDE
     Indication: GLAUCOMA
     Route: 047

REACTIONS (6)
  - Multiple sclerosis [Unknown]
  - Visual impairment [Unknown]
  - Eye irritation [Recovered/Resolved]
  - Myelitis transverse [Unknown]
  - Malaise [Unknown]
  - Nervous system disorder [Unknown]
